FAERS Safety Report 10870309 (Version 2)
Quarter: 2015Q1

REPORT INFORMATION
  Report Type: Spontaneous
  Country: US (occurrence: US)
  Receive Date: 20150226
  Receipt Date: 20150226
  Transmission Date: 20150721
  Serious: No
  Sender: FDA-Public Use
  Company Number: US-MYLANLABS-2014S1001945

PATIENT
  Age: 78 Year
  Sex: Female
  Weight: 41.28 kg

DRUGS (3)
  1. ATENOLOL TABLETS, USP [Suspect]
     Active Substance: ATENOLOL
     Dosage: 25 MG,QD
     Route: 048
     Dates: start: 20140120
  2. ATENOLOL TABLETS, USP [Suspect]
     Active Substance: ATENOLOL
     Indication: BLOOD PRESSURE INCREASED
  3. ATENOLOL TABLETS, USP [Suspect]
     Active Substance: ATENOLOL
     Dosage: 50 MG,QD
     Route: 048
     Dates: start: 201311, end: 20140119

REACTIONS (2)
  - Blood pressure increased [Not Recovered/Not Resolved]
  - Heart rate decreased [Not Recovered/Not Resolved]

NARRATIVE: CASE EVENT DATE: 201401
